FAERS Safety Report 6918548-4 (Version None)
Quarter: 2010Q3

REPORT INFORMATION
  Report Type: 
  Country: None (occurrence: None)
  Receive Date: 20100811
  Receipt Date: 20100802
  Transmission Date: 20110219
  Serious: Yes (Hospitalization)
  Sender: FDA-Public Use
  Company Number: BR-ASTRAZENECA-2010SE36192

PATIENT
  Age: 70 Year
  Sex: Female
  Weight: 95 kg

DRUGS (10)
  1. ATENOL [Suspect]
     Indication: HYPERTENSION
     Route: 048
     Dates: start: 19950101
  2. HYGROTON [Concomitant]
     Indication: HYPERTENSION
     Route: 048
     Dates: start: 19740101, end: 20040101
  3. LOSARTEC [Concomitant]
     Indication: HYPERTENSION
     Route: 048
     Dates: start: 19950101, end: 20040101
  4. LOSARTEC [Concomitant]
     Route: 048
     Dates: start: 20040101, end: 20100701
  5. LOSARTEC [Concomitant]
     Route: 048
     Dates: start: 20100701
  6. OSCAL D [Concomitant]
     Indication: OSTEOPOROSIS
     Route: 048
     Dates: start: 20000101
  7. DERMAVITE [Concomitant]
     Indication: OSTEOPOROSIS
     Route: 048
     Dates: start: 20000101
  8. PRAVACHOL [Concomitant]
     Indication: BLOOD CHOLESTEROL INCREASED
     Route: 048
     Dates: start: 20000101
  9. SLOW-K [Concomitant]
     Indication: HYPERTENSION
     Route: 048
     Dates: start: 20040101
  10. VENALOT [Concomitant]
     Indication: PAIN IN EXTREMITY
     Dates: start: 20070101

REACTIONS (9)
  - BLOOD CHOLESTEROL INCREASED [None]
  - BLOOD PRESSURE INADEQUATELY CONTROLLED [None]
  - DRUG INEFFECTIVE [None]
  - GASTROINTESTINAL CARCINOMA [None]
  - HYPOKALAEMIA [None]
  - MUSCLE SPASMS [None]
  - NAUSEA [None]
  - OSTEOPOROSIS [None]
  - PAIN IN EXTREMITY [None]
